FAERS Safety Report 6658058-5 (Version None)
Quarter: 2010Q1

REPORT INFORMATION
  Report Type: 
  Country: None (occurrence: None)
  Receive Date: 20100330
  Receipt Date: 20100318
  Transmission Date: 20100710
  Serious: Yes (Other)
  Sender: FDA-Public Use
  Company Number: JP-MERCK-1002USA00394

PATIENT
  Age: 53 Year
  Sex: Male

DRUGS (18)
  1. EMEND [Suspect]
     Indication: PROPHYLAXIS OF NAUSEA AND VOMITING
     Route: 048
     Dates: start: 20100107, end: 20100107
  2. EMEND [Suspect]
     Route: 048
     Dates: start: 20100108, end: 20100109
  3. ERBITUX [Suspect]
     Indication: COLON CANCER
     Route: 041
     Dates: start: 20090319, end: 20100107
  4. DECADRON [Concomitant]
     Route: 065
     Dates: start: 20090319, end: 20100109
  5. NAUZELIN [Concomitant]
     Route: 065
     Dates: start: 20090320, end: 20100114
  6. GASMOTIN [Concomitant]
     Route: 065
     Dates: start: 20080310
  7. MAGNESIUM OXIDE [Concomitant]
     Route: 065
     Dates: start: 20090430
  8. CHLOR-TRIMETON [Concomitant]
     Route: 065
     Dates: start: 20090319, end: 20100107
  9. ATROPINE [Concomitant]
     Route: 065
     Dates: start: 20090716, end: 20100107
  10. CONCLYTE MG [Concomitant]
     Route: 065
     Dates: start: 20100107, end: 20100107
  11. MYSER [Concomitant]
     Route: 065
     Dates: start: 20090430
  12. SAHNE [Concomitant]
     Route: 065
     Dates: start: 20090402
  13. TOPOTECAN [Concomitant]
     Route: 065
  14. FLUOROURACIL [Concomitant]
     Route: 065
  15. ISOVORIN [Concomitant]
     Route: 065
  16. KYTRIL [Concomitant]
     Route: 065
     Dates: start: 20060419, end: 20100107
  17. KYTRIL [Concomitant]
     Route: 065
     Dates: start: 20090320, end: 20100108
  18. DECADRON [Concomitant]
     Route: 065
     Dates: start: 20090319, end: 20100107

REACTIONS (1)
  - SKIN DISORDER [None]
